FAERS Safety Report 25585295 (Version 2)
Quarter: 2025Q3

REPORT INFORMATION
  Report Type: Spontaneous
  Country: CN (occurrence: CN)
  Receive Date: 20250721
  Receipt Date: 20250926
  Transmission Date: 20251020
  Serious: Yes (Life-Threatening, Hospitalization)
  Sender: BAYER HEALTHCARE PHARMACEUTICALS INC.
  Company Number: CN-BAYER-2025A095248

PATIENT
  Age: 40 Year
  Sex: Female

DRUGS (1)
  1. ULTRAVIST [Suspect]
     Active Substance: IOPROMIDE
     Route: 042
     Dates: start: 20250714

REACTIONS (4)
  - Syncope [Recovering/Resolving]
  - Rash erythematous [Recovering/Resolving]
  - Flushing [Recovering/Resolving]
  - Blood pressure decreased [None]

NARRATIVE: CASE EVENT DATE: 20250714
